FAERS Safety Report 19967463 (Version 3)
Quarter: 2021Q4

REPORT INFORMATION
  Report Type: Spontaneous
  Country: DE (occurrence: DE)
  Receive Date: 20211019
  Receipt Date: 20211221
  Transmission Date: 20220304
  Serious: Yes (Other)
  Sender: FDA-Public Use
  Company Number: None

PATIENT
  Age: 47 Year
  Sex: Female
  Weight: 70 kg

DRUGS (20)
  1. METAMIZOLE SODIUM [Interacting]
     Active Substance: METAMIZOLE SODIUM
     Indication: Pain
     Dosage: COMBINATION OF VENLAFAXINE WITH NOVAMINSULFON ; AS NECESSARY
     Dates: start: 20200929, end: 202108
  2. VENLAFAXINE HYDROCHLORIDE [Interacting]
     Active Substance: VENLAFAXINE HYDROCHLORIDE
     Indication: Depression
     Dates: start: 20201120, end: 202110
  3. VENLAFAXINE HYDROCHLORIDE [Interacting]
     Active Substance: VENLAFAXINE HYDROCHLORIDE
     Indication: Depression
     Dates: start: 20200224, end: 202008
  4. VENLAFAXINE HYDROCHLORIDE [Interacting]
     Active Substance: VENLAFAXINE HYDROCHLORIDE
     Indication: Depression
     Dates: start: 20200820, end: 202011
  5. VENLAFAXINE HYDROCHLORIDE [Interacting]
     Active Substance: VENLAFAXINE HYDROCHLORIDE
     Indication: Depression
     Dates: start: 20211019
  6. SERTRALINE HYDROCHLORIDE [Interacting]
     Active Substance: SERTRALINE HYDROCHLORIDE
     Indication: Depression
     Dates: start: 20190328, end: 20200115
  7. NOVALGIN (METAMIZOLE SODIUM) [Interacting]
     Active Substance: METAMIZOLE SODIUM
     Indication: Pain
     Dosage: COMBINATION OF VENLAFAXINE WITH NOVAMINSULFON
     Dates: start: 20200818
  8. NOVALGIN (METAMIZOLE SODIUM) [Interacting]
     Active Substance: METAMIZOLE SODIUM
     Indication: Pain
     Dosage: COMBINATION OF SERTRALINE WITH NOVAMINSULFON
     Dates: start: 20191205
  9. METAMIZOLE [Interacting]
     Active Substance: METAMIZOLE
     Indication: Pain
     Dosage: COMBINATION OF SERTRALIN WITH NOVAMINSULFON
     Dates: start: 20200227
  10. METAMIZOLE [Interacting]
     Active Substance: METAMIZOLE
     Indication: Pain
     Dosage: COMBINATION OF SERTRALINE WITH NOVAMINSULFON
     Dates: start: 20190621
  11. GABAPENTIN [Concomitant]
     Active Substance: GABAPENTIN
     Dates: start: 20210131
  12. IBUPROFEN [Concomitant]
     Active Substance: IBUPROFEN
     Dates: start: 20210715
  13. IBUPROFEN [Concomitant]
     Active Substance: IBUPROFEN
     Dates: start: 20200227
  14. IBUPROFEN [Concomitant]
     Active Substance: IBUPROFEN
     Dates: start: 20191205
  15. PANTOPRAZOLE SODIUM [Concomitant]
     Active Substance: PANTOPRAZOLE SODIUM
     Dates: start: 20200929
  16. PANTOPRAZOLE SODIUM [Concomitant]
     Active Substance: PANTOPRAZOLE SODIUM
     Dates: start: 20200227
  17. methocarbamol 750 [Concomitant]
     Dates: start: 20191205
  18. OMEPRAZOLE [Concomitant]
     Active Substance: OMEPRAZOLE
     Dates: start: 20191205
  19. AMITRIPTYLINE [Concomitant]
     Active Substance: AMITRIPTYLINE
     Dates: start: 20200204
  20. AMITRIPTYLINE [Concomitant]
     Active Substance: AMITRIPTYLINE
     Dates: start: 20200116

REACTIONS (13)
  - Nervousness [Unknown]
  - Therapeutic product effect increased [Unknown]
  - Headache [Unknown]
  - Antidepressant discontinuation syndrome [Unknown]
  - Coordination abnormal [Unknown]
  - Drug ineffective [Unknown]
  - Mania [Unknown]
  - Suicidal ideation [Unknown]
  - Depression [Unknown]
  - Hyperhidrosis [Unknown]
  - Drug interaction [Unknown]
  - Restlessness [Unknown]
  - Therapeutic product effect decreased [Unknown]

NARRATIVE: CASE EVENT DATE: 20190101
